FAERS Safety Report 7544175-4 (Version None)
Quarter: 2011Q2

REPORT INFORMATION
  Report Type: 
  Country: None (occurrence: None)
  Receive Date: 20110613
  Receipt Date: 20070710
  Transmission Date: 20111010
  Serious: Yes (Death, Hospitalization, Other)
  Sender: FDA-Public Use
  Company Number: PHMT2007CA01326

PATIENT
  Sex: Male

DRUGS (1)
  1. SANDOSTATIN LAR [Suspect]
     Indication: CARCINOID TUMOUR
     Dosage: 30 MG, EVERY 4 WEEKS
     Route: 030
     Dates: start: 20061016, end: 20070511

REACTIONS (6)
  - DEATH [None]
  - ABDOMINAL PAIN [None]
  - OXYGEN SATURATION DECREASED [None]
  - HYPOTENSION [None]
  - MALAISE [None]
  - INTESTINAL OBSTRUCTION [None]
